FAERS Safety Report 7360061-7 (Version None)
Quarter: 2011Q1

REPORT INFORMATION
  Report Type: 
  Country: None (occurrence: None)
  Receive Date: 20110317
  Receipt Date: 20110218
  Transmission Date: 20110831
  Serious: No
  Sender: FDA-Public Use
  Company Number: US-B.I. PHARMACEUTICALS,INC./RIDGEFIELD-2011-BP-03776BP

PATIENT
  Age: 64 Year
  Sex: Female

DRUGS (15)
  1. VITAMIN B-12 [Concomitant]
  2. TRAZODONE [Concomitant]
     Indication: INSOMNIA
     Dosage: 150 MG
  3. PROTONIX [Concomitant]
     Indication: GASTROOESOPHAGEAL REFLUX DISEASE
     Dosage: 40 MG
  4. ATENOLOL [Concomitant]
     Indication: HYPERTENSION
     Dosage: 50 MG
  5. SPIRIVA [Concomitant]
     Indication: CHRONIC OBSTRUCTIVE PULMONARY DISEASE
  6. ZOLOFT [Concomitant]
     Indication: DEPRESSION
     Dosage: 100 MG
  7. PRADAXA [Suspect]
     Indication: ATRIAL FIBRILLATION
     Dosage: 300 MG
     Route: 048
     Dates: start: 20110131
  8. PRADAXA [Suspect]
     Indication: CEREBROVASCULAR ACCIDENT PROPHYLAXIS
  9. LORTAB [Concomitant]
  10. PLAVIX [Concomitant]
     Indication: ATRIAL FIBRILLATION
     Dosage: 75 MG
  11. ADVAIR DISKUS 100/50 [Concomitant]
  12. HYDROCHLOROTHIAZIDE [Concomitant]
  13. PROAIR HFA [Concomitant]
  14. NITROGLYCERIN PUMP [Concomitant]
     Indication: ANGINA PECTORIS
  15. LISINOPRIL [Concomitant]
     Indication: HYPERTENSION
     Dosage: 40 MG

REACTIONS (3)
  - DIARRHOEA [None]
  - DYSPHAGIA [None]
  - HEADACHE [None]
